FAERS Safety Report 8502704-8 (Version None)
Quarter: 2012Q3

REPORT INFORMATION
  Report Type: 
  Country: None (occurrence: None)
  Receive Date: 20120702
  Receipt Date: 20120626
  Transmission Date: 20120928
  Serious: Yes (Other)
  Sender: FDA-Public Use
  Company Number: GER/GER/12/0024837

PATIENT
  Age: 31 Year
  Sex: Female
  Weight: 65 kg

DRUGS (4)
  1. FOLIO [Concomitant]
  2. CITALOPRAM HYDROBROMIDE [Suspect]
     Indication: DEPRESSION
     Dosage: 20 MG, 1 D, ORAL : 10 MG, 1 D, TRANSPLACENTAL
     Route: 048
     Dates: start: 20100511, end: 20100808
  3. CITALOPRAM HYDROBROMIDE [Suspect]
     Indication: DEPRESSION
     Dosage: 20 MG, 1 D, ORAL : 10 MG, 1 D, TRANSPLACENTAL
     Route: 048
     Dates: end: 20100808
  4. IMPFSTOFF GRIPPE (INFLUENZA VACCINE) [Concomitant]

REACTIONS (5)
  - PREGNANCY [None]
  - PROLONGED PREGNANCY [None]
  - POLYHYDRAMNIOS [None]
  - OBSTRUCTED LABOUR [None]
  - MATERNAL EXPOSURE DURING PREGNANCY [None]
